FAERS Safety Report 5011008-X (Version None)
Quarter: 2006Q2

REPORT INFORMATION
  Report Type: 
  Country: None (occurrence: None)
  Receive Date: 20060523
  Receipt Date: 20060523
  Transmission Date: 20061013
  Serious: Yes (Other)
  Sender: FDA-Public Use
  Company Number: None

PATIENT
  Sex: Female
  Weight: 58.9676 kg

DRUGS (1)
  1. FOSAMAX [Suspect]
     Indication: OSTEOPENIA
     Dosage: 70 MG X 1/ WEEK PO
     Route: 048
     Dates: start: 20040115, end: 20060522

REACTIONS (3)
  - BONE PAIN [None]
  - IMPAIRED HEALING [None]
  - TOOTH EXTRACTION [None]
